FAERS Safety Report 19115961 (Version 7)
Quarter: 2024Q4

REPORT INFORMATION
  Report Type: Spontaneous
  Country: US (occurrence: US)
  Receive Date: 20210409
  Receipt Date: 20241112
  Transmission Date: 20250114
  Serious: Yes (Other)
  Sender: JOHNSON AND JOHNSON
  Company Number: US-JNJFOC-20210400251

PATIENT
  Age: 70 Year
  Sex: Female
  Weight: 73.548 kg

DRUGS (41)
  1. XARELTO [Suspect]
     Active Substance: RIVAROXABAN
     Indication: Thrombosis
     Dosage: FOR 21 DAYS
     Route: 048
     Dates: start: 20200608, end: 20200629
  2. XARELTO [Suspect]
     Active Substance: RIVAROXABAN
     Route: 048
     Dates: start: 20200629, end: 20210104
  3. XARELTO [Suspect]
     Active Substance: RIVAROXABAN
     Route: 048
     Dates: end: 20240918
  4. ELIQUIS [Suspect]
     Active Substance: APIXABAN
  5. ATORVASTATIN [Concomitant]
     Active Substance: ATORVASTATIN
     Route: 048
  6. ATORVASTATIN [Concomitant]
     Active Substance: ATORVASTATIN
     Dosage: 1 TABLET (40 MG) BY MOUTH BEFORE EVENING MEAL.
     Route: 048
  7. METFORMIN [Concomitant]
     Active Substance: METFORMIN HYDROCHLORIDE
     Route: 048
  8. METFORMIN [Concomitant]
     Active Substance: METFORMIN HYDROCHLORIDE
     Dosage: TAKE 1 TABLET (1,000 MG) BY MOUTH WITH BREAKFAST AND WITH EVENING MEAL.
     Route: 048
  9. POTASSIUM [Concomitant]
     Active Substance: POTASSIUM
  10. HYDROCHLOROTHIAZIDE [Concomitant]
     Active Substance: HYDROCHLOROTHIAZIDE
     Route: 048
  11. HYDROCHLOROTHIAZIDE [Concomitant]
     Active Substance: HYDROCHLOROTHIAZIDE
     Dosage: TAKE 1 TABLET (12.5 MG) BY MOUTH DAILY.
     Route: 048
  12. HYDROCHLOROTHIAZIDE [Concomitant]
     Active Substance: HYDROCHLOROTHIAZIDE
     Dosage: TAKE 1 TABLET (25 MG) BY MOUTH DAILY
     Route: 048
  13. AMLODIPINE BESYLATE [Concomitant]
     Active Substance: AMLODIPINE BESYLATE
     Dosage: 10-20 MG
  14. CIPROFLOXACIN HYDROCHLORIDE [Concomitant]
     Active Substance: CIPROFLOXACIN HYDROCHLORIDE
     Dosage: EVERY 12 HOURS FOR 10 DAYS
  15. METHYLPREDNISOLONE [Concomitant]
     Active Substance: METHYLPREDNISOLONE
     Dosage: TAKE 6 TABLETS ON DAY 1 AS DIRECTED ON PACKAGE AND DECREASE BY 1 TAB EACH DAY
  16. POVIDONE-IODINE [Concomitant]
     Active Substance: POVIDONE-IODINE
  17. GRAMICIDIN\NEOMYCIN SULFATE\POLYMYXIN B SULFATE [Concomitant]
     Active Substance: GRAMICIDIN\NEOMYCIN SULFATE\POLYMYXIN B SULFATE
  18. HYDROXYCHLOROQUINE [Concomitant]
     Active Substance: HYDROXYCHLOROQUINE
     Indication: Arthralgia
     Dosage: TAKE 1 TABLET (200 MG) BY MOUTH TWO (2) TIMES DAILY.
     Route: 048
  19. NALTREXONE [Concomitant]
     Active Substance: NALTREXONE
     Indication: Wound
     Route: 048
  20. NALTREXONE [Concomitant]
     Active Substance: NALTREXONE
     Indication: Skin laceration
  21. ARNICARE [Concomitant]
     Active Substance: HOMEOPATHICS
     Indication: Pain
  22. AMOXICILLIN\CLAVULANIC ACID [Concomitant]
     Active Substance: AMOXICILLIN\CLAVULANIC ACID
     Dosage: 875-125MG
  23. DESOXIMETASONE [Concomitant]
     Active Substance: DESOXIMETASONE
     Dosage: 0.25%
  24. ERYTHROMYCIN [Concomitant]
     Active Substance: ERYTHROMYCIN
  25. OXYCODONE [Concomitant]
     Active Substance: OXYCODONE
  26. PREDNISOLONE [Concomitant]
     Active Substance: PREDNISOLONE
  27. FLUOCINOLONE [Concomitant]
     Active Substance: FLUOCINOLONE
     Dosage: 0.01% OIL (APPLY TO AFFECTED AREA SCALP AND BEHIND EARS TWICE A DAY X 1-2 WEEKS AS NEEDED FOR ITCH/F
  28. UREA [Concomitant]
     Active Substance: UREA
     Dosage: 40%
  29. PFIZER BIONTECH COVID-19 VACCINE, BIVALENT (ORIGINAL AND OMICRON BA.4/ [Concomitant]
  30. AMLODIPINE\OLMESARTAN [Concomitant]
     Active Substance: AMLODIPINE\OLMESARTAN
     Dosage: 10 - 20 MG
     Route: 048
  31. AMICARE [Concomitant]
  32. CLOBETASOL [Concomitant]
     Active Substance: CLOBETASOL
     Dosage: 0.05% (APPLY TO AFFECTED AREA ON HANDS OR LEGS TWICE A DAY FOR 2 WEEKS AS NEEDED ITCH)
     Route: 061
  33. LOTRIMIN [CLOTRIMAZOLE] [Concomitant]
     Dosage: 1% (APPLY TOPICALLY TWO (2) TIMES DAILY)               .
     Route: 061
  34. BACTRIM DS [Concomitant]
     Active Substance: SULFAMETHOXAZOLE\TRIMETHOPRIM
     Dosage: 800-160 MG (TAKE 1 TABLET BY MOUTH TWO (2) TIMES DAILY FOR 14 DAYS).
     Route: 048
  35. ASPIRIN [Concomitant]
     Active Substance: ASPIRIN
     Route: 048
  36. KETOCONAZOLE [Concomitant]
     Active Substance: KETOCONAZOLE
     Dosage: APPLY TOPICALLY 2 (TWO) TIMES A WEEK. SHAMPOO DAILY, LEAVE ON FOR 5-10 MINUTES, THEN RINSE.
     Route: 061
  37. KETOCONAZOLE [Concomitant]
     Active Substance: KETOCONAZOLE
     Dosage: APPLY TOPICALLY TWO (2) TIMES DAILY.
     Route: 061
  38. LOSARTAN [Concomitant]
     Active Substance: LOSARTAN
     Dosage: TAKE 1 TABLET (100 MG) BY MOUTH DAILY.
     Route: 048
  39. PREDNISOLONE ACETATE [Concomitant]
     Active Substance: PREDNISOLONE ACETATE
     Route: 047
  40. SHINGRIX [Concomitant]
     Active Substance: RECOMBINANT VARICELLA ZOSTER VIRUS (VZV) GLYCOPROTEIN E
     Dosage: 50 MCG/0.5ML (ZOSTER VACCINE-RECOMBINANT ADJUVANTED)
  41. ASPIRIN [Concomitant]
     Active Substance: ASPIRIN
     Dosage: TAKE 1 TABLET (81 MG) BY MOUTH DAILY.
     Route: 048

REACTIONS (11)
  - Systemic lupus erythematosus [Recovering/Resolving]
  - Lung neoplasm malignant [Unknown]
  - Thrombosis [Not Recovered/Not Resolved]
  - Rheumatoid arthritis [Unknown]
  - Scleroderma [Unknown]
  - Hypoaesthesia [Unknown]
  - Otorrhoea [Unknown]
  - Headache [Unknown]
  - Dysphonia [Unknown]
  - Visual impairment [Unknown]
  - Arthralgia [Unknown]

NARRATIVE: CASE EVENT DATE: 20200101
